FAERS Safety Report 7383840-9 (Version None)
Quarter: 2011Q1

REPORT INFORMATION
  Report Type: 
  Country: None (occurrence: None)
  Receive Date: 20110330
  Receipt Date: 20110321
  Transmission Date: 20110831
  Serious: Yes (Hospitalization)
  Sender: FDA-Public Use
  Company Number: FR-ASTRAZENECA-2011SE16850

PATIENT
  Age: 75 Year
  Sex: Male

DRUGS (4)
  1. LOXEN [Concomitant]
  2. CRESTOR [Suspect]
     Route: 048
     Dates: start: 20060101, end: 20110201
  3. ARIXTRA [Concomitant]
  4. VASTAREL [Concomitant]

REACTIONS (1)
  - LUNG DISORDER [None]
